FAERS Safety Report 4574040-6 (Version None)
Quarter: 2005Q1

REPORT INFORMATION
  Report Type: 
  Country: None (occurrence: None)
  Receive Date: 20050204
  Receipt Date: 20050121
  Transmission Date: 20050727
  Serious: Yes (Other)
  Sender: FDA-Public Use
  Company Number: 2005018035

PATIENT
  Age: 57 Year
  Sex: Female

DRUGS (4)
  1. LINEZOLID TABLET (LINEZOLID) [Suspect]
     Indication: OSTEOMYELITIS
     Dates: start: 20040101
  2. TETRACYCLINE [Concomitant]
  3. NYSTATIN [Concomitant]
  4. CLINDAMYCIN (CLINDAMYCIN) [Concomitant]

REACTIONS (9)
  - ALANINE AMINOTRANSFERASE INCREASED [None]
  - ALOPECIA [None]
  - ASPARTATE AMINOTRANSFERASE INCREASED [None]
  - BLOOD ALKALINE PHOSPHATASE INCREASED [None]
  - BLOOD BILIRUBIN INCREASED [None]
  - CANDIDIASIS [None]
  - HEPATIC FUNCTION ABNORMAL [None]
  - LIVER TENDERNESS [None]
  - MALAISE [None]
